FAERS Safety Report 8922661 (Version 1)
Quarter: 2012Q4

REPORT INFORMATION
  Report Type: 
  Country: US (occurrence: US)
  Receive Date: 20121125
  Receipt Date: 20121125
  Transmission Date: 20130627
  Serious: Yes (Death)
  Sender: FDA-Public Use
  Company Number: US-BRISTOL-MYERS SQUIBB COMPANY-17129149

PATIENT
  Sex: Female

DRUGS (1)
  1. LYSODREN [Suspect]
     Indication: ADRENAL CARCINOMA
     Dosage: Container type: Bottle
     Dates: start: 1994

REACTIONS (2)
  - Malignant neoplasm progression [Fatal]
  - Adrenocortical carcinoma [None]
